FAERS Safety Report 8054192-6 (Version None)
Quarter: 2012Q1

REPORT INFORMATION
  Report Type: 
  Country: None (occurrence: None)
  Receive Date: 20120118
  Receipt Date: 20120111
  Transmission Date: 20120608
  Serious: Yes (Disabling, Congenital Anomaly, Other)
  Sender: FDA-Public Use
  Company Number: US-ABBOTT-11P-163-0847321-00

PATIENT
  Sex: Female

DRUGS (1)
  1. DEPAKOTE [Suspect]
     Indication: MATERNAL EXPOSURE TIMING UNSPECIFIED
     Route: 064

REACTIONS (24)
  - UNEVALUABLE EVENT [None]
  - EMOTIONAL DISTRESS [None]
  - ANHEDONIA [None]
  - TALIPES [None]
  - DEFORMITY [None]
  - PAIN [None]
  - MASTICATION DISORDER [None]
  - SPEECH DISORDER [None]
  - DYSPHAGIA [None]
  - INJURY [None]
  - MULTIPLE CONGENITAL ABNORMALITIES [None]
  - CONGENITAL ANOMALY [None]
  - PHYSICAL DISABILITY [None]
  - TRACHEAL OBSTRUCTION [None]
  - BLADDER DISORDER [None]
  - SPINA BIFIDA [None]
  - IMPAIRED WORK ABILITY [None]
  - HEART DISEASE CONGENITAL [None]
  - DEAFNESS [None]
  - CAESAREAN SECTION [None]
  - FOETAL EXPOSURE DURING PREGNANCY [None]
  - MENTAL DISORDER [None]
  - NEURAL TUBE DEFECT [None]
  - MATERNAL DRUGS AFFECTING FOETUS [None]
